FAERS Safety Report 25409194 (Version 1)
Quarter: 2025Q2

REPORT INFORMATION
  Report Type: Spontaneous
  Country: US (occurrence: US)
  Receive Date: 20250607
  Receipt Date: 20250607
  Transmission Date: 20250716
  Serious: No
  Sender: RIGEL PHARMACEUTICALS
  Company Number: US-RIGEL Pharmaceuticals, INC-20240800051

PATIENT
  Sex: Female
  Weight: 103.87 kg

DRUGS (1)
  1. TAVALISSE [Suspect]
     Active Substance: FOSTAMATINIB
     Indication: Immune thrombocytopenia
     Dosage: 100 MG ONCE DAILY
     Route: 048
     Dates: start: 20221012

REACTIONS (2)
  - Headache [Unknown]
  - Product prescribing error [Unknown]
